FAERS Safety Report 23069094 (Version 1)
Quarter: 2023Q4

REPORT INFORMATION
  Report Type: Spontaneous
  Country: US (occurrence: None)
  Receive Date: 20231015
  Receipt Date: 20231015
  Transmission Date: 20240110
  Serious: Yes (Life-Threatening)
  Sender: FDA-Public Use
  Company Number: None

PATIENT
  Age: 44 Year
  Sex: Female
  Weight: 39.4 kg

DRUGS (1)
  1. VARENICLINE [Suspect]
     Active Substance: VARENICLINE

REACTIONS (1)
  - Angioedema [None]

NARRATIVE: CASE EVENT DATE: 20231015
